FAERS Safety Report 9102053 (Version 5)
Quarter: 2014Q4

REPORT INFORMATION
  Report Type: Spontaneous
  Country: TR (occurrence: TR)
  Receive Date: 20130218
  Receipt Date: 20141120
  Transmission Date: 20150529
  Serious: Yes (Other)
  Sender: FDA-Public Use
  Company Number: TR-ROCHE-1191668

PATIENT
  Age: 57 Year
  Sex: Male

DRUGS (2)
  1. XOLAIR [Suspect]
     Active Substance: OMALIZUMAB
     Indication: ASTHMA
     Dosage: 375-300 MG
     Route: 065
  2. HUMALOG [Concomitant]
     Active Substance: INSULIN LISPRO
     Dosage: 30 UNITS BEFORE BREAKFAST AND 4 UNITS BEFORE SUPPER
     Route: 065

REACTIONS (1)
  - Hyperglycaemia [Recovered/Resolved]
